FAERS Safety Report 4836940-9 (Version None)
Quarter: 2005Q4

REPORT INFORMATION
  Report Type: 
  Country: None (occurrence: None)
  Receive Date: 20051121
  Receipt Date: 20051108
  Transmission Date: 20060501
  Serious: Yes (Hospitalization, Other)
  Sender: FDA-Public Use
  Company Number: 22279

PATIENT
  Sex: Female
  Weight: 60.782 kg

DRUGS (1)
  1. LEUCOVORIN CALCIUM [Suspect]
     Indication: PANCREATIC CARCINOMA
     Dosage: 200MG/M2
     Dates: start: 20050811

REACTIONS (6)
  - ASTHENIA [None]
  - CONFUSIONAL STATE [None]
  - DEHYDRATION [None]
  - NAUSEA [None]
  - ORTHOSTATIC HYPOTENSION [None]
  - VOMITING [None]
